FAERS Safety Report 9688273 (Version 1)
Quarter: 2013Q4

REPORT INFORMATION
  Report Type: Spontaneous
  Country: US (occurrence: None)
  Receive Date: 20131113
  Receipt Date: 20131113
  Transmission Date: 20140711
  Serious: No
  Sender: FDA-Public Use
  Company Number: None

PATIENT
  Age: 32 Year
  Sex: Female
  Weight: 53.52 kg

DRUGS (1)
  1. PARAGARD [Suspect]

REACTIONS (3)
  - Pain [None]
  - Back pain [None]
  - Ovarian cyst [None]
